FAERS Safety Report 9508333 (Version 1)
Quarter: 2013Q3

REPORT INFORMATION
  Report Type: Spontaneous
  Country: US (occurrence: US)
  Receive Date: 20130909
  Receipt Date: 20130909
  Transmission Date: 20140515
  Serious: No
  Sender: FDA-Public Use
  Company Number: US-PFIZER INC-2013256634

PATIENT
  Sex: Male

DRUGS (1)
  1. CHILDREN^S MOTRIN [Suspect]
     Dosage: UNK
     Route: 048
     Dates: start: 20130711, end: 20130711

REACTIONS (2)
  - Accidental exposure to product [Unknown]
  - Incorrect dose administered [Unknown]
